FAERS Safety Report 6039442-X (Version None)
Quarter: 2009Q1

REPORT INFORMATION
  Report Type: 
  Country: None (occurrence: None)
  Receive Date: 20090115
  Receipt Date: 20090108
  Transmission Date: 20090719
  Serious: Yes (Other)
  Sender: FDA-Public Use
  Company Number: JP-ALLERGAN-0900492US

PATIENT
  Sex: Male

DRUGS (8)
  1. ALESION TABLET [Suspect]
     Indication: PRURIGO
     Dosage: 20 MG, QD
  2. OXATOMIDE [Suspect]
     Indication: PRURIGO
     Dosage: 120 MG, QD
  3. OXATOMIDE [Suspect]
     Dosage: 120 MG, QD
  4. AMLODIPINE [Concomitant]
     Indication: HYPERTENSION
     Dosage: 5 MG, QD
  5. CANDESARTAN [Concomitant]
     Indication: HYPERTENSION
     Dosage: 8 MG, QD
  6. AROTINOLOL [Concomitant]
     Indication: HYPERTENSION
     Dosage: 20 MG, QD
  7. FUROSEMIDE [Concomitant]
     Indication: HYPERTENSION
     Dosage: 20 MG, QD
  8. ALLOPURINOL [Concomitant]
     Indication: HYPERURICAEMIA
     Dosage: 200 MG, QD

REACTIONS (1)
  - MYOCLONUS [None]
